FAERS Safety Report 9295612 (Version 1)
Quarter: 2013Q1

REPORT INFORMATION
  Report Type: Spontaneous
  Country: US (occurrence: None)
  Receive Date: 20130103
  Receipt Date: 20130103
  Transmission Date: 20140127
  Serious: Yes (Other)
  Sender: FDA-Public Use
  Company Number: DSA_55803_2012

PATIENT
  Sex: Female
  Weight: 86.18 kg

DRUGS (1)
  1. XENAZINE [Suspect]
     Indication: DYSKINESIA
     Route: 048
     Dates: start: 20101130, end: 20120322

REACTIONS (1)
  - Nervousness [None]
